FAERS Safety Report 9645026 (Version 2)
Quarter: 2013Q4

REPORT INFORMATION
  Report Type: Report from Study
  Country: ES (occurrence: ES)
  Receive Date: 20131025
  Receipt Date: 20131025
  Transmission Date: 20140711
  Serious: Yes (Other)
  Sender: FDA-Public Use
  Company Number: ES-ABBVIE-12P-144-0894998-00

PATIENT
  Age: 45 Year
  Sex: Female
  Weight: 90 kg

DRUGS (4)
  1. HUMIRA 40 MG/ 0.8 ML PRE-FILLED SYRINGE [Suspect]
     Indication: PSORIASIS
     Dosage: INDUCTION DOSE
     Route: 058
     Dates: start: 20101125, end: 20101125
  2. HUMIRA 40 MG/ 0.8 ML PRE-FILLED SYRINGE [Suspect]
     Route: 058
     Dates: start: 20101202, end: 201108
  3. UNK TREATMENT [Concomitant]
     Indication: INFLAMMATORY BOWEL DISEASE
  4. UNK TREATMENT [Concomitant]
     Indication: DEPRESSION

REACTIONS (4)
  - Myalgia [Recovering/Resolving]
  - Pleural effusion [Recovering/Resolving]
  - Antinuclear antibody positive [Recovering/Resolving]
  - Systemic lupus erythematosus [Recovering/Resolving]
